FAERS Safety Report 5116299-2 (Version None)
Quarter: 2006Q3

REPORT INFORMATION
  Report Type: 
  Country: None (occurrence: None)
  Receive Date: 20060927
  Receipt Date: 20060707
  Transmission Date: 20061208
  Serious: Yes (Hospitalization)
  Sender: FDA-Public Use
  Company Number: DE-BOEHRINGER INGELHEIM GMBH, GERMANY-2006-DE-04116BY

PATIENT
  Sex: Female

DRUGS (2)
  1. KINZALKOMB [Suspect]
     Indication: HYPERTENSION
     Route: 048
     Dates: start: 20060522, end: 20060706
  2. SOTALOL HYDROCHLORIDE [Concomitant]
     Route: 065
     Dates: start: 20060522, end: 20060707

REACTIONS (5)
  - ERYTHEMA [None]
  - FEELING HOT [None]
  - PHOTOSENSITIVITY REACTION [None]
  - PRURITUS [None]
  - RASH [None]
